FAERS Safety Report 17303984 (Version 1)
Quarter: 2020Q1

REPORT INFORMATION
  Report Type: Spontaneous
  Country: US (occurrence: US)
  Receive Date: 20200104
  Receipt Date: 20200104
  Transmission Date: 20200409
  Serious: Yes (Hospitalization)
  Sender: FDA-Public Use
  Company Number: None

PATIENT
  Age: 67 Year
  Sex: Male
  Weight: 76.2 kg

DRUGS (1)
  1. NALOXEGOL OXALATE. [Suspect]
     Active Substance: NALOXEGOL OXALATE
     Dates: end: 20191212

REACTIONS (4)
  - Embolic cerebral infarction [None]
  - Dysphagia [None]
  - Pulmonary embolism [None]
  - Deep vein thrombosis [None]

NARRATIVE: CASE EVENT DATE: 20191212
